FAERS Safety Report 7618323-1 (Version None)
Quarter: 2011Q3

REPORT INFORMATION
  Report Type: 
  Country: None (occurrence: None)
  Receive Date: 20110718
  Receipt Date: 20110708
  Transmission Date: 20111222
  Serious: Yes (Other)
  Sender: FDA-Public Use
  Company Number: FR-ROCHE-788830

PATIENT
  Sex: Female
  Weight: 2.8 kg

DRUGS (1)
  1. OSELTAMIVIR [Suspect]
     Dosage: FREQUENCY: TWICE DAILY DURING 5 DAYS.
     Route: 064
     Dates: start: 20091101, end: 20091101

REACTIONS (2)
  - UMBILICAL CORD AROUND NECK [None]
  - INTRA-UTERINE DEATH [None]
